FAERS Safety Report 10475193 (Version 1)
Quarter: 2014Q3

REPORT INFORMATION
  Report Type: Spontaneous
  Country: US (occurrence: None)
  Receive Date: 20140924
  Receipt Date: 20140924
  Transmission Date: 20150326
  Serious: Yes (Hospitalization)
  Sender: FDA-Public Use
  Company Number: None

PATIENT
  Age: 88 Year
  Sex: Female
  Weight: 63.63 kg

DRUGS (16)
  1. COUMADIN [Suspect]
     Active Substance: WARFARIN SODIUM
     Indication: ATRIAL FIBRILLATION
     Route: 048
  2. BENAZEPRIL [Concomitant]
     Active Substance: BENAZEPRIL\BENAZEPRIL HYDROCHLORIDE
  3. LEXAPRO [Concomitant]
     Active Substance: ESCITALOPRAM OXALATE
  4. DIGOXIN. [Concomitant]
     Active Substance: DIGOXIN
  5. CENTR [Concomitant]
  6. ZOCOR [Concomitant]
     Active Substance: SIMVASTATIN
  7. KCL [Concomitant]
     Active Substance: POTASSIUM CHLORIDE
  8. IMDUR [Concomitant]
     Active Substance: ISOSORBIDE MONONITRATE
  9. PROTONIX [Concomitant]
     Active Substance: PANTOPRAZOLE SODIUM
  10. MELATONIN [Concomitant]
     Active Substance: MELATONIN
  11. COREG [Concomitant]
     Active Substance: CARVEDILOL
  12. LASIX [Concomitant]
     Active Substance: FUROSEMIDE
  13. ARICEPT [Concomitant]
     Active Substance: DONEPEZIL HYDROCHLORIDE
  14. CALTRATE [Concomitant]
     Active Substance: CALCIUM CARBONATE
  15. ULTRAM [Concomitant]
     Active Substance: TRAMADOL HYDROCHLORIDE
  16. MAG OX [Concomitant]
     Active Substance: MAGNESIUM OXIDE

REACTIONS (2)
  - Haemorrhage intracranial [None]
  - Hypertension [None]

NARRATIVE: CASE EVENT DATE: 20140528
